FAERS Safety Report 19238823 (Version 1)
Quarter: 2021Q2

REPORT INFORMATION
  Report Type: Other
  Country: US (occurrence: US)
  Receive Date: 20210510
  Receipt Date: 20210510
  Transmission Date: 20210717
  Serious: No
  Sender: FDA-Public Use
  Company Number: US-NOVA LABORATORIES LIMITED-2110375

PATIENT
  Age: 15 Month
  Sex: Female

DRUGS (1)
  1. PURIXAN [Suspect]
     Active Substance: MERCAPTOPURINE
     Indication: LANGERHANS^ CELL HISTIOCYTOSIS

REACTIONS (1)
  - Off label use [None]
